FAERS Safety Report 7200510-8 (Version None)
Quarter: 2010Q4

REPORT INFORMATION
  Report Type: 
  Country: None (occurrence: None)
  Receive Date: 20101228
  Receipt Date: 20101222
  Transmission Date: 20110411
  Serious: Yes (Hospitalization)
  Sender: FDA-Public Use
  Company Number: FR-PFIZER INC-2010177061

PATIENT
  Age: 56 Year
  Sex: Male

DRUGS (5)
  1. FLUCONAZOLE [Suspect]
     Dosage: UNK
     Route: 048
     Dates: start: 20100309, end: 20100330
  2. AUGMENTIN '125' [Suspect]
     Dosage: 3 G /DAY
     Route: 048
     Dates: start: 20100309, end: 20100330
  3. NEXIUM [Suspect]
     Dosage: 20 MG, 1X/DAY
     Route: 048
     Dates: start: 20100201, end: 20100330
  4. ORACILLINE [Suspect]
     Dosage: 1 UNK, 1X/DAY
     Route: 048
     Dates: start: 20090901, end: 20100330
  5. VALACYCLOVIR HYDROCHLORIDE (VALTREX) [Concomitant]
     Dosage: 500 MG, 2X/DAY
     Route: 048
     Dates: start: 20100309

REACTIONS (2)
  - SKIN TEST NEGATIVE [None]
  - STEVENS-JOHNSON SYNDROME [None]
